FAERS Safety Report 24823956 (Version 1)
Quarter: 2025Q1

REPORT INFORMATION
  Report Type: Other
  Country: CN (occurrence: CN)
  Receive Date: 20250109
  Receipt Date: 20250109
  Transmission Date: 20250409
  Serious: Yes (Other)
  Sender: TRIS PHARMA, INC.
  Company Number: CN-TRIS PHARMA, INC.-24CN011804

PATIENT

DRUGS (3)
  1. QUILLICHEW ER [Suspect]
     Active Substance: METHYLPHENIDATE HYDROCHLORIDE
     Indication: Attention deficit hyperactivity disorder
     Dosage: 10 MILLIGRAM, QD, IN MORNING
     Route: 048
     Dates: start: 20241229, end: 20241230
  2. HERBALS [Suspect]
     Active Substance: HERBALS
     Indication: Psychomotor hyperactivity
     Route: 048
     Dates: start: 20241229, end: 20241230
  3. LYSINE, INOSITE AND VITAMIN B12 [Concomitant]
     Indication: Decreased appetite
     Route: 048
     Dates: start: 20241229, end: 20241230

REACTIONS (5)
  - Haematemesis [Recovered/Resolved]
  - Blunted affect [Recovered/Resolved]
  - Off label use [Unknown]
  - Nausea [Recovered/Resolved]
  - Dizziness [Recovered/Resolved]

NARRATIVE: CASE EVENT DATE: 20241229
